FAERS Safety Report 8539083-6 (Version None)
Quarter: 2012Q3

REPORT INFORMATION
  Report Type: 
  Country: None (occurrence: None)
  Receive Date: 20120726
  Receipt Date: 20120725
  Transmission Date: 20120928
  Serious: Yes (Other)
  Sender: FDA-Public Use
  Company Number: PHEH2012US002242

PATIENT
  Sex: Female

DRUGS (4)
  1. VINCRISTINE [Concomitant]
  2. DECADRON [Concomitant]
  3. AREDIA [Suspect]
     Dosage: 90 MG,
  4. ADRIAMYCIN PFS [Concomitant]

REACTIONS (13)
  - ARRHYTHMIA [None]
  - MULTIPLE MYELOMA [None]
  - LUNG INFILTRATION [None]
  - HYPERCALCAEMIA [None]
  - NEUTROPENIC SEPSIS [None]
  - NEPHROPATHY [None]
  - FEBRILE NEUTROPENIA [None]
  - MENTAL DISORDER [None]
  - TUBULOINTERSTITIAL NEPHRITIS [None]
  - STAPHYLOCOCCAL BACTERAEMIA [None]
  - PNEUMONIA [None]
  - PULMONARY VALVE INCOMPETENCE [None]
  - OSTEOLYSIS [None]
